APPROVED DRUG PRODUCT: DILACOR XR
Active Ingredient: DILTIAZEM HYDROCHLORIDE
Strength: 120MG **Federal Register determination that product was not discontinued or withdrawn for safety or effectiveness reasons**
Dosage Form/Route: CAPSULE, EXTENDED RELEASE;ORAL
Application: N020092 | Product #001
Applicant: ALLERGAN SALES LLC
Approved: May 29, 1992 | RLD: Yes | RS: No | Type: DISCN